FAERS Safety Report 10525476 (Version 3)
Quarter: 2014Q4

REPORT INFORMATION
  Report Type: Spontaneous
  Country: US (occurrence: US)
  Receive Date: 20141017
  Receipt Date: 20141203
  Transmission Date: 20150528
  Serious: Yes (Life-Threatening, Hospitalization, Other)
  Sender: FDA-Public Use
  Company Number: US-JNJFOC-20141009491

PATIENT
  Sex: Female

DRUGS (2)
  1. TYLENOL WITH CODEINE [Suspect]
     Active Substance: ACETAMINOPHEN\CODEINE PHOSPHATE
     Indication: PRODUCT USED FOR UNKNOWN INDICATION
     Route: 048
  2. NUCYNTA [Suspect]
     Active Substance: TAPENTADOL HYDROCHLORIDE
     Indication: PRODUCT USED FOR UNKNOWN INDICATION
     Dosage: 3 TIMES PER DAY
     Route: 048

REACTIONS (12)
  - Intervertebral disc injury [Not Recovered/Not Resolved]
  - Wrong technique in drug usage process [Unknown]
  - Staphylococcal infection [Recovered/Resolved]
  - Lung infiltration [Not Recovered/Not Resolved]
  - Infection [Recovered/Resolved]
  - Memory impairment [Not Recovered/Not Resolved]
  - Adverse drug reaction [Unknown]
  - Intervertebral disc protrusion [Not Recovered/Not Resolved]
  - Breast cancer [Recovered/Resolved]
  - Treatment noncompliance [Unknown]
  - Pain [Not Recovered/Not Resolved]
  - Acute respiratory distress syndrome [Recovered/Resolved]
